FAERS Safety Report 9752008 (Version 1)
Quarter: 2013Q4

REPORT INFORMATION
  Report Type: Spontaneous
  Country: US (occurrence: None)
  Receive Date: 20131212
  Receipt Date: 20131212
  Transmission Date: 20140711
  Serious: Yes (Other)
  Sender: FDA-Public Use
  Company Number: None

PATIENT
  Age: 62 None
  Sex: Male

DRUGS (1)
  1. MOVIPREP [Suspect]
     Indication: COLONOSCOPY
     Dosage: 2 LITERALYS 1 X ORAL
     Route: 048
     Dates: start: 20131124

REACTIONS (2)
  - Product label issue [None]
  - Product packaging issue [None]
